FAERS Safety Report 20911682 (Version 1)
Quarter: 2022Q2

REPORT INFORMATION
  Report Type: Spontaneous
  Country: FR (occurrence: FR)
  Receive Date: 20220603
  Receipt Date: 20220603
  Transmission Date: 20220720
  Serious: Yes (Hospitalization)
  Sender: FDA-Public Use
  Company Number: None

PATIENT
  Age: 65 Year
  Sex: Female
  Weight: 75 kg

DRUGS (5)
  1. ALPRAZOLAM [Suspect]
     Active Substance: ALPRAZOLAM
     Indication: Anxiety
  2. COMIRNATY [Suspect]
     Active Substance: TOZINAMERAN
     Indication: COVID-19 immunisation
     Dosage: D2, DISPERSION TO BE DILUTED FOR INJECTION. COVID-19 MRNA VACCINE (MODIFIED NUCLEOSIDE)UNIT DOSE: 1
     Route: 030
     Dates: start: 20210706, end: 20210706
  3. LYRICA [Suspect]
     Active Substance: PREGABALIN
     Indication: Product used for unknown indication
     Dosage: LYRICA 150MG, CAPSULE, 1CP 3/ D, UNIT DOSE: 450 MG, FREQUENCY : 1 DAYS
  4. TRAMADOL HYDROCHLORIDE [Suspect]
     Active Substance: TRAMADOL HYDROCHLORIDE
     Indication: Pain
     Dosage: TOPALGIC L.P. 200 MG, UNIT DOSE: 1 DF, FREQUENCY : 1 DAYS
  5. PANTOPRAZOLE [Concomitant]
     Active Substance: PANTOPRAZOLE

REACTIONS (2)
  - Cerebellar syndrome [Not Recovered/Not Resolved]
  - Meningitis aseptic [Recovering/Resolving]

NARRATIVE: CASE EVENT DATE: 20210708
